FAERS Safety Report 6810121-1 (Version None)
Quarter: 2010Q2

REPORT INFORMATION
  Report Type: 
  Country: None (occurrence: None)
  Receive Date: 20100630
  Receipt Date: 20100628
  Transmission Date: 20101027
  Serious: Yes (Hospitalization)
  Sender: FDA-Public Use
  Company Number: FR-ROCHE-711800

PATIENT
  Sex: Male

DRUGS (16)
  1. ROCEPHIN [Suspect]
     Indication: DRUG USE FOR UNKNOWN INDICATION
     Dosage: 1 G POWDER FOR SOLUTION FOR INJECTION
     Route: 030
     Dates: start: 20100320, end: 20100401
  2. DIAMICRON [Suspect]
     Indication: DRUG USE FOR UNKNOWN INDICATION
     Route: 048
  3. DIAMICRON [Suspect]
     Dosage: DOSE REDUCED
     Route: 048
     Dates: end: 20100401
  4. METFORMIN HCL [Suspect]
     Indication: DRUG USE FOR UNKNOWN INDICATION
     Route: 048
     Dates: end: 20100401
  5. JANUMET [Suspect]
     Indication: DRUG USE FOR UNKNOWN INDICATION
     Route: 048
     Dates: start: 20100325, end: 20100401
  6. DIFFU K [Concomitant]
  7. ZESTRIL [Concomitant]
  8. AMIODARONE HYDROCHLORIDE [Concomitant]
  9. KREDEX [Concomitant]
  10. LEVOTHYROXINE SODIUM [Concomitant]
  11. KARDEGIC [Concomitant]
     Dosage: FORM:POWDER FOR ORAL SOLUTION
     Route: 048
  12. EUPRESSYL [Concomitant]
  13. INIPOMP [Concomitant]
     Dosage: GASTRO-RESISTANT TABLET
  14. SPECIAFOLDINE [Concomitant]
  15. FUROSEMIDE [Concomitant]
  16. VITAMIN B1/VITAMIN B6 [Concomitant]

REACTIONS (3)
  - APHASIA [None]
  - COMA [None]
  - HYPOGLYCAEMIA [None]
